FAERS Safety Report 4281382-0 (Version None)
Quarter: 2004Q1

REPORT INFORMATION
  Report Type: 
  Country: None (occurrence: None)
  Receive Date: 20040109
  Receipt Date: 20031029
  Transmission Date: 20041129
  Serious: No
  Sender: FDA-Public Use
  Company Number: US053352

PATIENT
  Age: 56 Year
  Sex: Female

DRUGS (5)
  1. KINERET [Suspect]
     Indication: RHEUMATOID ARTHRITIS
     Dosage: 100 MG, DAILY, SC
     Route: 058
     Dates: start: 20031012, end: 20031018
  2. CELECOXIB [Concomitant]
  3. DILTIAZEM HYDROCHLORIDE [Concomitant]
  4. GLIPIZIDE [Concomitant]
  5. METFORMIN HYDROCHLORIDE [Concomitant]

REACTIONS (2)
  - HEADACHE [None]
  - RHEUMATOID ARTHRITIS [None]
